FAERS Safety Report 5286247-3 (Version None)
Quarter: 2007Q1

REPORT INFORMATION
  Report Type: 
  Country: None (occurrence: None)
  Receive Date: 20070116
  Receipt Date: 20061207
  Transmission Date: 20070707
  Serious: No
  Sender: FDA-Public Use
  Company Number: 2006SP004318

PATIENT
  Age: 54 Year
  Sex: Male
  Weight: 90.7194 kg

DRUGS (3)
  1. LUNESTA [Suspect]
     Indication: INSOMNIA
     Dosage: 2 MG;QOD;ORAL
     Route: 048
     Dates: start: 20061204
  2. OLANZAPINE [Concomitant]
  3. NASAL SPRAY [Concomitant]

REACTIONS (2)
  - HEADACHE [None]
  - MIDDLE INSOMNIA [None]
